FAERS Safety Report 9114437 (Version 1)
Quarter: 2013Q1

REPORT INFORMATION
  Report Type: Report from Study
  Country: US (occurrence: US)
  Receive Date: 20130129
  Receipt Date: 20130129
  Transmission Date: 20140127
  Serious: Yes (Hospitalization)
  Sender: FDA-Public Use
  Company Number: US-ABBOTT-12P-163-0939906-00

PATIENT
  Age: 78 Year
  Sex: Female

DRUGS (6)
  1. HUMIRA 40 MG/ 0.8 ML PRE-FILLED SYRINGE [Suspect]
     Indication: CROHN^S DISEASE
     Dates: start: 201204
  2. NEXIUM [Concomitant]
     Indication: PRODUCT USED FOR UNKNOWN INDICATION
  3. LEVOTHYROXINE [Concomitant]
     Indication: PRODUCT USED FOR UNKNOWN INDICATION
  4. SINGULAIR [Concomitant]
     Indication: ASTHMA
  5. CORGARD [Concomitant]
     Indication: HYPERTENSION
  6. PREVASTATIN [Concomitant]
     Indication: HYPERLIPIDAEMIA

REACTIONS (4)
  - Diarrhoea [Unknown]
  - Leukopenia [Recovering/Resolving]
  - Crohn^s disease [Unknown]
  - Colitis [Unknown]
